FAERS Safety Report 25282846 (Version 1)
Quarter: 2025Q2

REPORT INFORMATION
  Report Type: Report from Study
  Country: US (occurrence: US)
  Receive Date: 20250508
  Receipt Date: 20250508
  Transmission Date: 20250717
  Serious: No
  Sender: ACADIA PHARMACEUTICALS
  Company Number: US-ACADIA PHARMACEUTICALS INC.-ACA-2025-PIM-005254

PATIENT
  Sex: Female

DRUGS (12)
  1. NUPLAZID [Suspect]
     Active Substance: PIMAVANSERIN TARTRATE
     Indication: Psychotic disorder due to a general medical condition
     Dosage: 34 MILLIGRAM, TAKE ONE CAPSUE BY MOUTH EVERY DAY
     Route: 048
     Dates: start: 20250417, end: 20250427
  2. NUPLAZID [Suspect]
     Active Substance: PIMAVANSERIN TARTRATE
     Indication: Hallucination
  3. AMLODIPINE [Concomitant]
     Active Substance: AMLODIPINE BESYLATE
  4. ATORVASTATIN [Concomitant]
     Active Substance: ATORVASTATIN
  5. CITALOPRAM [Concomitant]
     Active Substance: CITALOPRAM
  6. JARDIANCE [Concomitant]
     Active Substance: EMPAGLIFLOZIN
  7. LOSARTAN POTASSIUM [Concomitant]
     Active Substance: LOSARTAN POTASSIUM
  8. MELATONIN [Concomitant]
     Active Substance: MELATONIN
  9. RISPERIDONE [Concomitant]
     Active Substance: RISPERIDONE
  10. RIVASTIGMINE [Concomitant]
     Active Substance: RIVASTIGMINE
  11. TRADJENTA [Concomitant]
     Active Substance: LINAGLIPTIN
  12. TRAZODONE [Concomitant]
     Active Substance: TRAZODONE HYDROCHLORIDE

REACTIONS (1)
  - Insomnia [Recovered/Resolved]
